FAERS Safety Report 7585836-0 (Version None)
Quarter: 2011Q2

REPORT INFORMATION
  Report Type: 
  Country: None (occurrence: None)
  Receive Date: 20110624
  Receipt Date: 20110614
  Transmission Date: 20111010
  Serious: Yes (Hospitalization)
  Sender: FDA-Public Use
  Company Number: CA-005575

PATIENT
  Sex: Male

DRUGS (3)
  1. FIRMAGON [Suspect]
     Indication: PROSTATE CANCER
     Dosage: 80 MG 1X/MONTH, SUBCUTANEOUS
     Route: 058
  2. PREVACID [Concomitant]
  3. IBUPROFEN (ADVIL) [Concomitant]

REACTIONS (8)
  - BLOOD PRESSURE DECREASED [None]
  - NAUSEA [None]
  - DIZZINESS [None]
  - DYSPNOEA [None]
  - PALLOR [None]
  - ABDOMINAL PAIN [None]
  - ERUCTATION [None]
  - HYPERHIDROSIS [None]
